FAERS Safety Report 9562326 (Version 2)
Quarter: 2013Q3

REPORT INFORMATION
  Report Type: Report from Study
  Country: US (occurrence: US)
  Receive Date: 20130927
  Receipt Date: 20130927
  Transmission Date: 20140515
  Serious: Yes (Hospitalization)
  Sender: FDA-Public Use
  Company Number: US-ACTELION-A-US2013-87806

PATIENT
  Age: 38 Year
  Sex: Female

DRUGS (3)
  1. TRACLEER [Suspect]
     Indication: CARDIAC SEPTAL DEFECT
     Dosage: 125 MG, BID
     Route: 048
     Dates: start: 201106
  2. NORVASC [Concomitant]
     Dosage: 5 MG, UNK
     Route: 048
  3. ATENOLOL [Concomitant]
     Dosage: 25 MG, UNK
     Route: 048

REACTIONS (1)
  - Atrial fibrillation [Recovered/Resolved]
